FAERS Safety Report 12667237 (Version 1)
Quarter: 2016Q3

REPORT INFORMATION
  Report Type: Spontaneous
  Country: US (occurrence: US)
  Receive Date: 20160819
  Receipt Date: 20160819
  Transmission Date: 20161109
  Serious: Yes (Hospitalization, Other)
  Sender: FDA-Public Use
  Company Number: US-ASTRAZENECA-2016SE87791

PATIENT

DRUGS (4)
  1. OXYGEN. [Concomitant]
     Active Substance: OXYGEN
     Dosage: CONTINUOUSLY
  2. SPIRIVA [Concomitant]
     Active Substance: TIOTROPIUM BROMIDE MONOHYDRATE
  3. SYMBICORT [Suspect]
     Active Substance: BUDESONIDE\FORMOTEROL FUMARATE DIHYDRATE
     Route: 055
  4. RESCUE INHALER [Concomitant]

REACTIONS (4)
  - Chronic obstructive pulmonary disease [Unknown]
  - Lung neoplasm malignant [Unknown]
  - Pneumonia [Unknown]
  - Emphysema [Unknown]
